FAERS Safety Report 19210371 (Version 2)
Quarter: 2021Q2

REPORT INFORMATION
  Report Type: Spontaneous
  Country: US (occurrence: US)
  Receive Date: 20210504
  Receipt Date: 20210608
  Transmission Date: 20210717
  Serious: No
  Sender: FDA-Public Use
  Company Number: US-B.I. PHARMACEUTICALS,INC./RIDGEFIELD-2021-BI-101496

PATIENT
  Age: 72 Year
  Sex: Male

DRUGS (1)
  1. JARDIANCE [Suspect]
     Active Substance: EMPAGLIFLOZIN
     Indication: TYPE 2 DIABETES MELLITUS
     Dosage: 10MG ONCE A DAY
     Dates: start: 20210202, end: 20210423

REACTIONS (5)
  - Pain [Not Recovered/Not Resolved]
  - Balanoposthitis [Not Recovered/Not Resolved]
  - Genital infection fungal [Recovering/Resolving]
  - Discomfort [Not Recovered/Not Resolved]
  - Penile swelling [Recovering/Resolving]

NARRATIVE: CASE EVENT DATE: 202104
